FAERS Safety Report 9530033 (Version 1)
Quarter: 2013Q3

REPORT INFORMATION
  Report Type: Spontaneous
  Country: IN (occurrence: IN)
  Receive Date: 20130917
  Receipt Date: 20130917
  Transmission Date: 20140515
  Serious: Yes (Other)
  Sender: FDA-Public Use
  Company Number: IN-MERCK-1309IND005792

PATIENT
  Age: 65 Year
  Sex: Male

DRUGS (1)
  1. JANUMET [Suspect]
     Dosage: 1/DAY
     Route: 048
     Dates: end: 2013

REACTIONS (3)
  - Aphasia [Recovered/Resolved]
  - Inappropriate schedule of drug administration [Unknown]
  - Mechanical ventilation [Recovered/Resolved]
